FAERS Safety Report 24272749 (Version 1)
Quarter: 2024Q3

REPORT INFORMATION
  Report Type: Spontaneous
  Country: US (occurrence: US)
  Receive Date: 20240902
  Receipt Date: 20240902
  Transmission Date: 20241017
  Serious: Yes (Death)
  Sender: ROCHE
  Company Number: US-ROCHE-10000071201

PATIENT
  Age: 66 Year
  Sex: Female

DRUGS (1)
  1. ACTEMRA ACTPEN [Suspect]
     Active Substance: TOCILIZUMAB
     Indication: Systemic scleroderma
     Route: 058
     Dates: start: 202403

REACTIONS (1)
  - Death [Fatal]
